FAERS Safety Report 8152176-0 (Version None)
Quarter: 2012Q1

REPORT INFORMATION
  Report Type: 
  Country: None (occurrence: None)
  Receive Date: 20120215
  Receipt Date: 20120215
  Transmission Date: 20120608
  Serious: Yes (Hospitalization)
  Sender: FDA-Public Use
  Company Number: None

PATIENT
  Sex: Male
  Weight: 78.6 kg

DRUGS (2)
  1. TAXOL [Suspect]
     Dosage: 580 MG
     Dates: end: 20120123
  2. CARBOPLATIN [Suspect]
     Dosage: 860 MG
     Dates: end: 20120131

REACTIONS (8)
  - TERMINAL INSOMNIA [None]
  - PYREXIA [None]
  - ATELECTASIS [None]
  - DEHYDRATION [None]
  - PULMONARY EMBOLISM [None]
  - ASTHENIA [None]
  - CHEST PAIN [None]
  - NAUSEA [None]
